FAERS Safety Report 5152772-9 (Version None)
Quarter: 2006Q4

REPORT INFORMATION
  Report Type: 
  Country: None (occurrence: None)
  Receive Date: 20060918
  Receipt Date: 20050824
  Transmission Date: 20070319
  Serious: Yes (Hospitalization)
  Sender: FDA-Public Use
  Company Number: US-JNJFOC-20050503180

PATIENT
  Age: 46 Year
  Sex: Female
  Weight: 90.7194 kg

DRUGS (3)
  1. TOPAMAX [Suspect]
     Indication: MIGRAINE PROPHYLAXIS
     Dosage: 50 MG IN 1 DAY UNKNOWN
     Route: 065
     Dates: end: 20050719
  2. NEXIUM (UNSPECIFIED) ESOMEPRAZOLE [Concomitant]
  3. PROZAC (UNSPECIFIED) FLUOXETINE HYDROCHLORIDE [Concomitant]

REACTIONS (2)
  - NEPHROLITHIASIS [None]
  - PARATHYROID DISORDER [None]
